FAERS Safety Report 5675449-X (Version None)
Quarter: 2008Q2

REPORT INFORMATION
  Report Type: 
  Country: None (occurrence: None)
  Receive Date: 20080311
  Receipt Date: 20070426
  Transmission Date: 20081010
  Serious: Yes (Other)
  Sender: FDA-Public Use
  Company Number: PHEH2007US06514

PATIENT
  Sex: Female

DRUGS (1)
  1. TRILEPTAL [Suspect]
     Indication: NEURALGIA
     Dosage: 900 MG, QD
     Dates: start: 20051201

REACTIONS (5)
  - ANOREXIA [None]
  - BLOOD SODIUM DECREASED [None]
  - DIZZINESS [None]
  - NAUSEA [None]
  - POLLAKIURIA [None]
